FAERS Safety Report 6898881-5 (Version None)
Quarter: 2010Q3

REPORT INFORMATION
  Report Type: 
  Country: None (occurrence: None)
  Receive Date: 20100802
  Receipt Date: 20071218
  Transmission Date: 20110219
  Serious: Yes (Other)
  Sender: FDA-Public Use
  Company Number: US-PFIZER INC-2007060571

PATIENT
  Sex: Male
  Weight: 93.4 kg

DRUGS (16)
  1. LYRICA [Suspect]
     Indication: BACK PAIN
  2. CALCIUM MAGNESIUM ZINC [Concomitant]
  3. VITAMIN B COMPLEX CAP [Concomitant]
  4. WARFARIN SODIUM [Concomitant]
  5. ASCORBIC ACID [Concomitant]
  6. LIPITOR [Concomitant]
  7. PROTONIX [Concomitant]
  8. FISH OIL [Concomitant]
  9. FOLTX [Concomitant]
  10. SAW PALMETTO [Concomitant]
  11. NIASPAN [Concomitant]
  12. TRICOR [Concomitant]
  13. LANOXIN [Concomitant]
  14. DILTIAZEM [Concomitant]
  15. CYMBALTA [Concomitant]
  16. ROBAXIN [Concomitant]

REACTIONS (11)
  - ARTHRALGIA [None]
  - ATRIAL FIBRILLATION [None]
  - BACK PAIN [None]
  - FATIGUE [None]
  - GENERALISED OEDEMA [None]
  - MALAISE [None]
  - MUSCULAR WEAKNESS [None]
  - NECK PAIN [None]
  - PALPITATIONS [None]
  - VIRAL INFECTION [None]
  - WEIGHT INCREASED [None]
